FAERS Safety Report 8153992-1 (Version None)
Quarter: 2012Q1

REPORT INFORMATION
  Report Type: 
  Country: None (occurrence: None)
  Receive Date: 20120221
  Receipt Date: 20120221
  Transmission Date: 20120608
  Serious: Yes (Life-Threatening, Hospitalization)
  Sender: FDA-Public Use
  Company Number: None

PATIENT
  Age: 10 Year
  Sex: Male
  Weight: 31.751 kg

DRUGS (1)
  1. ADVAIR DISKUS 100/50 [Suspect]
     Indication: ASTHMA
     Dosage: 250/50
     Route: 055

REACTIONS (11)
  - DYSPNOEA [None]
  - VENTRICULAR TACHYCARDIA [None]
  - VOMITING [None]
  - HYPOXIC-ISCHAEMIC ENCEPHALOPATHY [None]
  - CHOREA [None]
  - LEARNING DISORDER [None]
  - ASPIRATION [None]
  - VENTRICULAR FIBRILLATION [None]
  - FALL [None]
  - BRONCHOSPASM [None]
  - INAPPROPRIATE SCHEDULE OF DRUG ADMINISTRATION [None]
